FAERS Safety Report 16452171 (Version 1)
Quarter: 2019Q2

REPORT INFORMATION
  Report Type: Report from Study
  Country: NO (occurrence: NO)
  Receive Date: 20190619
  Receipt Date: 20190619
  Transmission Date: 20190711
  Serious: Yes (Death, Other)
  Sender: FDA-Public Use
  Company Number: NO-PFIZER INC-2019256791

PATIENT
  Sex: Male

DRUGS (7)
  1. CYCLOPHOSPHAMIDE. [Suspect]
     Active Substance: CYCLOPHOSPHAMIDE
     Indication: TESTICULAR GERM CELL TUMOUR
     Dosage: 500 MG/M2, CYCLIC (DAY 2, CUMULATIVE DOSE 3600 MG,REPEATED AT 3-WEEK INTERVALS)
  2. VINBLASTIN [Suspect]
     Active Substance: VINBLASTINE
     Indication: TESTICULAR GERM CELL TUMOUR
     Dosage: UNK, CYCLIC (CUMULATIVE DOSE 112 MG)
  3. BLEOMYCIN [Suspect]
     Active Substance: BLEOMYCIN SULFATE
     Indication: TESTICULAR GERM CELL TUMOUR
     Dosage: UNK, CYCLIC (CUMULATIVE DOSE 325 MG)
  4. VINCRISTINE SULFATE. [Suspect]
     Active Substance: VINCRISTINE SULFATE
     Indication: TESTICULAR GERM CELL TUMOUR
     Dosage: 1.50 MG/M2, CYCLIC (MAX. 2 MG) DAY 1 (AND DAY 8 AND 15 OF FIRST COURSE, REPEATED AT 3 WEEK INTERVAL
  5. ADRIAMYCIN [Suspect]
     Active Substance: DOXORUBICIN HYDROCHLORIDE
     Indication: TESTICULAR GERM CELL TUMOUR
     Dosage: 50 MG/M2, CYCLIC (DAY 2,  REPEATED AT 3-WEEK INTERVALS) CUMULATIVE 340MG
  6. CISPLATIN. [Suspect]
     Active Substance: CISPLATIN
     Indication: TESTICULAR GERM CELL TUMOUR
     Dosage: UNK, CYCLIC (CUMULATIVE DOSE 1210 MG)
  7. CCNU [Suspect]
     Active Substance: LOMUSTINE
     Indication: TESTICULAR GERM CELL TUMOUR
     Dosage: UNK, CYCLIC (CUMULATIVE DOSE 1160 MG)

REACTIONS (5)
  - Polyneuropathy [Unknown]
  - Peptic ulcer [Fatal]
  - Second primary malignancy [Fatal]
  - Myelofibrosis [Fatal]
  - Abnormal faeces [Fatal]
